FAERS Safety Report 4674435-6 (Version None)
Quarter: 2005Q2

REPORT INFORMATION
  Report Type: 
  Country: None (occurrence: None)
  Receive Date: 20050526
  Receipt Date: 20050113
  Transmission Date: 20051028
  Serious: Yes (Other)
  Sender: FDA-Public Use
  Company Number: PHEH2005US00850

PATIENT
  Age: 58 Year
  Sex: Female
  Weight: 91 kg

DRUGS (18)
  1. CARAFATE [Concomitant]
     Indication: GASTROOESOPHAGEAL REFLUX DISEASE
     Dosage: 1 G, QID
     Route: 048
     Dates: start: 20031201
  2. FEMARA [Concomitant]
     Indication: BREAST CANCER METASTATIC
     Dosage: 2.5 MG, QD
     Dates: start: 20031101
  3. MS CONTIN [Concomitant]
     Indication: PAIN
     Dosage: 15-30 MG, Q12H
     Dates: start: 20031101
  4. MS CONTIN [Concomitant]
     Indication: PAIN
     Dosage: 15 MG, PRN
     Dates: start: 20031101
  5. MOTRIN [Concomitant]
     Indication: PAIN
     Dosage: 600 MG, PRN
     Dates: start: 20031101
  6. PREVACID [Concomitant]
     Indication: GASTROOESOPHAGEAL REFLUX DISEASE
     Dosage: 30 MG, PRN
     Dates: start: 20040801
  7. SENOKOT /USA/ [Concomitant]
     Indication: CONSTIPATION
     Dosage: 1-4 TABLETS, BID
     Dates: start: 20041101
  8. MIRALAX [Concomitant]
     Indication: CONSTIPATION
     Dosage: 17 G, PRN
     Dates: start: 20040201
  9. ZOFRAN [Concomitant]
     Indication: NAUSEA
     Dosage: 32 MG, UNK
     Route: 042
     Dates: start: 20031201
  10. ADRIAMYCIN + CYCLOPHOSPHAMIDE [Concomitant]
     Indication: CHEMOTHERAPY
     Dosage: UNK, Q 21-28 DAYS
     Route: 042
     Dates: start: 20031201, end: 20040408
  11. ALOXI [Concomitant]
     Indication: NAUSEA
     Dosage: 0.25 MG, UNK
     Route: 042
     Dates: start: 20031201
  12. TAXOTERE [Concomitant]
     Indication: CHEMOTHERAPY
     Dosage: 75 MG/MM2, Q 21 DAYS
     Route: 042
     Dates: start: 20040506, end: 20040805
  13. TAXOTERE [Concomitant]
     Dosage: 2.5 MG/MM2, 3DAYS ON, 1 DAY OFF
     Dates: start: 20040826
  14. DEXAMETHASONE [Concomitant]
     Dosage: 4 MG, BID FOR 3 DAYS, Q 21 DAYS
     Dates: start: 20040506, end: 20040805
  15. DEXAMETHASONE [Concomitant]
     Dosage: 10 MG, Q 21 DAYS
     Route: 042
     Dates: start: 20031201, end: 20040401
  16. EPOGEN [Concomitant]
     Dosage: 40000 UNITS, UNK
  17. NEULASTA [Concomitant]
     Dosage: 6 MG, Q 21-28 DAYS
     Route: 058
     Dates: start: 20040123, end: 20040412
  18. ZOMETA [Suspect]
     Indication: METASTASES TO BONE
     Dosage: 4 MG Q 28 DAYS
     Route: 042
     Dates: start: 20040115, end: 20041222

REACTIONS (4)
  - BONE DISORDER [None]
  - ORAL CANDIDIASIS [None]
  - OSTEONECROSIS [None]
  - TOOTH EXTRACTION [None]
